FAERS Safety Report 24623404 (Version 3)
Quarter: 2024Q4

REPORT INFORMATION
  Report Type: Spontaneous
  Country: BR (occurrence: BR)
  Receive Date: 20241115
  Receipt Date: 20241223
  Transmission Date: 20250114
  Serious: Yes (Hospitalization, Other)
  Sender: TAKEDA
  Company Number: BR-TAKEDA-2024TUS113936

PATIENT
  Sex: Male
  Weight: 51 kg

DRUGS (1)
  1. MARIBAVIR [Suspect]
     Active Substance: MARIBAVIR
     Indication: Product used for unknown indication
     Dosage: 400 MILLIGRAM, Q12H
     Dates: start: 20241009

REACTIONS (8)
  - Cytomegalovirus viraemia [Unknown]
  - Leukopenia [Unknown]
  - Viral load increased [Unknown]
  - Product use issue [Unknown]
  - Pyrexia [Unknown]
  - Taste disorder [Unknown]
  - Diarrhoea [Unknown]
  - Nausea [Unknown]
